FAERS Safety Report 5905916-2 (Version None)
Quarter: 2008Q4

REPORT INFORMATION
  Report Type: 
  Country: None (occurrence: None)
  Receive Date: 20081002
  Receipt Date: 20080924
  Transmission Date: 20090506
  Serious: Yes (Other)
  Sender: FDA-Public Use
  Company Number: US-WATSON-2008-05727

PATIENT
  Age: 38 Year
  Sex: Female

DRUGS (1)
  1. FERRLECIT [Suspect]
     Indication: IRON DEFICIENCY ANAEMIA
     Dosage: 125 MG, OVER 1/2 HOUR 1/WEEK
     Route: 042
     Dates: start: 20080807

REACTIONS (3)
  - CHEST PAIN [None]
  - DYSPHONIA [None]
  - DYSPNOEA [None]
